FAERS Safety Report 16468008 (Version 1)
Quarter: 2019Q2

REPORT INFORMATION
  Report Type: Spontaneous
  Country: US (occurrence: US)
  Receive Date: 20190624
  Receipt Date: 20190624
  Transmission Date: 20190711
  Serious: No
  Sender: FDA-Public Use
  Company Number: US-ZYDUS-021162

PATIENT
  Age: 90 Year
  Sex: Male

DRUGS (1)
  1. TAMSULOSIN/TAMSULOSIN HYDROCHLORIDE [Suspect]
     Active Substance: TAMSULOSIN HYDROCHLORIDE
     Indication: POLLAKIURIA
     Route: 048
     Dates: start: 2011, end: 201807

REACTIONS (8)
  - Food allergy [Not Recovered/Not Resolved]
  - Erection increased [Not Recovered/Not Resolved]
  - Insomnia [Recovered/Resolved]
  - Genital haemorrhage [Not Recovered/Not Resolved]
  - Genital swelling [Not Recovered/Not Resolved]
  - Abnormal dreams [Recovered/Resolved]
  - Genital rash [Not Recovered/Not Resolved]
  - Milk allergy [Not Recovered/Not Resolved]

NARRATIVE: CASE EVENT DATE: 201807
